FAERS Safety Report 6408692-2 (Version None)
Quarter: 2009Q4

REPORT INFORMATION
  Report Type: 
  Country: None (occurrence: None)
  Receive Date: 20091019
  Receipt Date: 20091005
  Transmission Date: 20100525
  Serious: Yes (Congenital Anomaly)
  Sender: FDA-Public Use
  Company Number: 1000009404

PATIENT

DRUGS (1)
  1. ESCITALOPRAM [Suspect]
     Dosage: 5 MG (5 MG, 1 IN 1 D), TRANSPLACENTAL
     Route: 064

REACTIONS (2)
  - DIGEORGE'S SYNDROME [None]
  - MATERNAL DRUGS AFFECTING FOETUS [None]
